FAERS Safety Report 5889984-2 (Version None)
Quarter: 2008Q3

REPORT INFORMATION
  Report Type: 
  Country: None (occurrence: None)
  Receive Date: 20080919
  Receipt Date: 20080619
  Transmission Date: 20090109
  Serious: Yes (Other)
  Sender: FDA-Public Use
  Company Number: JP-PFIZER INC-2008074851

PATIENT
  Age: 80 Year
  Sex: Male

DRUGS (1)
  1. MIGLITOL TABLET [Suspect]
     Dosage: DAILY DOSE:150MG
     Route: 048
     Dates: start: 20080221, end: 20080327

REACTIONS (1)
  - LIVER DISORDER [None]
